FAERS Safety Report 5368792-5 (Version None)
Quarter: 2007Q2

REPORT INFORMATION
  Report Type: 
  Country: None (occurrence: None)
  Receive Date: 20070620
  Receipt Date: 20070612
  Transmission Date: 20071010
  Serious: Yes (Hospitalization, Other)
  Sender: FDA-Public Use
  Company Number: 163-20785-07041399

PATIENT
  Age: 73 Year
  Sex: Male

DRUGS (11)
  1. THALOMID [Suspect]
     Indication: AMYLOIDOSIS
     Dosage: SEE IMAGE
     Route: 048
     Dates: start: 20070220, end: 20070305
  2. THALOMID [Suspect]
     Indication: AMYLOIDOSIS
     Dosage: SEE IMAGE
     Route: 048
     Dates: start: 20070306, end: 20070418
  3. ASPIRIN [Concomitant]
  4. PROCRIT [Concomitant]
  5. FERROUS SULFATE TAB [Concomitant]
  6. HUMULIN R [Concomitant]
  7. REGLAN [Concomitant]
  8. METOPROLOL TARTRATE [Concomitant]
  9. COUMADIN [Concomitant]
  10. ALLOPURINOL [Concomitant]
  11. IMDUR [Concomitant]

REACTIONS (7)
  - AMYLOIDOSIS [None]
  - AUTONOMIC NEUROPATHY [None]
  - BRADYCARDIA [None]
  - CONDITION AGGRAVATED [None]
  - ILEUS [None]
  - NEUROPATHY [None]
  - PULMONARY OEDEMA [None]
